FAERS Safety Report 7804626-4 (Version None)
Quarter: 2011Q4

REPORT INFORMATION
  Report Type: 
  Country: None (occurrence: None)
  Receive Date: 20111010
  Receipt Date: 20111004
  Transmission Date: 20120403
  Serious: Yes (Death)
  Sender: FDA-Public Use
  Company Number: US-PFIZER INC-2011219597

PATIENT
  Sex: Female

DRUGS (1)
  1. REVATIO [Suspect]
     Dosage: 1 DF, 3X/DAY
     Route: 048

REACTIONS (1)
  - DEATH [None]
